FAERS Safety Report 4786659-8 (Version None)
Quarter: 2005Q4

REPORT INFORMATION
  Report Type: 
  Country: None (occurrence: None)
  Receive Date: 20051003
  Receipt Date: 20051003
  Transmission Date: 20060501
  Serious: Yes (Death)
  Sender: FDA-Public Use
  Company Number: None

PATIENT
  Sex: Male
  Weight: 84.7 kg

DRUGS (6)
  1. HYDROXYUREA [Suspect]
     Indication: GLIOBLASTOMA MULTIFORME
     Dosage: 500MG PO BID
     Dates: start: 20050713
  2. PTK787 [Suspect]
     Indication: GLIOBLASTOMA MULTIFORME
     Dosage: 500MG PO QD
     Route: 048
     Dates: start: 20050706
  3. GLEEVEC [Suspect]
     Dosage: 600MG PO QD
     Route: 048
     Dates: start: 20050713
  4. DILANTIN [Concomitant]
  5. DECADRON [Concomitant]
  6. PROTONIX [Concomitant]

REACTIONS (2)
  - GLIOBLASTOMA MULTIFORME [None]
  - MALIGNANT NEOPLASM PROGRESSION [None]
